FAERS Safety Report 6269359-7 (Version None)
Quarter: 2009Q3

REPORT INFORMATION
  Report Type: 
  Country: None (occurrence: None)
  Receive Date: 20090715
  Receipt Date: 20090709
  Transmission Date: 20100115
  Serious: Yes (Other)
  Sender: FDA-Public Use
  Company Number: JP-WATSON-2009-05319

PATIENT
  Age: 31 Year
  Sex: Male

DRUGS (4)
  1. ETOPOSIDE [Suspect]
     Indication: TESTIS CANCER
     Dosage: UNK
     Dates: start: 20070201
  2. DEXAMETHASONE [Suspect]
     Indication: TESTIS CANCER
     Dosage: UNK
     Dates: start: 20070201
  3. CISPLATIN [Suspect]
     Indication: TESTIS CANCER
     Dosage: UNK
     Dates: start: 20070201
  4. BLEOMYCIN SULFATE [Suspect]
     Indication: TESTIS CANCER
     Dosage: UNK
     Dates: start: 20070201

REACTIONS (1)
  - CEREBRAL INFARCTION [None]
